FAERS Safety Report 8969740 (Version 1)
Quarter: 2012Q4

REPORT INFORMATION
  Report Type: 
  Country: US (occurrence: US)
  Receive Date: 20121218
  Receipt Date: 20121218
  Transmission Date: 20130627
  Serious: No
  Sender: FDA-Public Use
  Company Number: US-BRISTOL-MYERS SQUIBB COMPANY-16584088

PATIENT
  Age: 17 Year
  Sex: Male
  Weight: 88.43 kg

DRUGS (3)
  1. ABILIFY [Suspect]
     Indication: DEPRESSION
     Dosage: Dose reduced to 2.5mg
     Dates: start: 201201
  2. FLUOXETINE [Suspect]
  3. LAMOTRIGINE [Suspect]

REACTIONS (5)
  - Diplopia [Recovering/Resolving]
  - Hallucination [Unknown]
  - Weight increased [Unknown]
  - Muscle tightness [Unknown]
  - Fatigue [Unknown]
